FAERS Safety Report 7676560-4 (Version None)
Quarter: 2011Q3

REPORT INFORMATION
  Report Type: 
  Country: None (occurrence: None)
  Receive Date: 20110811
  Receipt Date: 20110802
  Transmission Date: 20111222
  Serious: Yes (Life-Threatening, Hospitalization)
  Sender: FDA-Public Use
  Company Number: FR-JNJFOC-20110507435

PATIENT
  Sex: Female

DRUGS (12)
  1. NORVIR [Interacting]
     Indication: HIV INFECTION
     Route: 048
     Dates: end: 20110407
  2. ACETAMINOPHEN [Concomitant]
     Dosage: TREATMENT FOR 19 DAYS
     Route: 048
  3. OESTRODOSE [Concomitant]
     Route: 003
  4. TRABECTEDIN [Interacting]
     Indication: UTERINE LEIOMYOSARCOMA
     Route: 042
     Dates: start: 20110318, end: 20110318
  5. BACTRIM [Interacting]
     Indication: PRODUCT USED FOR UNKNOWN INDICATION
     Route: 048
     Dates: start: 20110317
  6. VOGALENE [Concomitant]
     Indication: CHEMOTHERAPY
     Route: 048
     Dates: start: 20110317
  7. DEXAMETHASONE [Concomitant]
     Indication: HIV INFECTION
     Route: 042
     Dates: start: 20110318, end: 20110319
  8. NEXIUM [Concomitant]
     Route: 048
  9. EMEND [Concomitant]
     Indication: CHEMOTHERAPY
     Route: 048
     Dates: start: 20110318, end: 20110319
  10. PREZISTA [Suspect]
     Indication: HIV INFECTION
     Route: 048
     Dates: end: 20110407
  11. TRUVADA [Interacting]
     Indication: HIV INFECTION
     Route: 048
     Dates: end: 20110405
  12. ONDANSETRON [Concomitant]
     Indication: HIV TEST POSITIVE
     Route: 048
     Dates: start: 20110318, end: 20110319

REACTIONS (8)
  - PANCYTOPENIA [None]
  - GENERAL PHYSICAL HEALTH DETERIORATION [None]
  - ABDOMINAL PAIN UPPER [None]
  - DRUG INTERACTION [None]
  - RENAL FAILURE [None]
  - ANURIA [None]
  - RHABDOMYOLYSIS [None]
  - HEPATIC ENZYME INCREASED [None]
